FAERS Safety Report 5683241-5 (Version None)
Quarter: 2008Q1

REPORT INFORMATION
  Report Type: 
  Country: None (occurrence: None)
  Receive Date: 20080327
  Receipt Date: 20080324
  Transmission Date: 20080703
  Serious: Yes (Other)
  Sender: FDA-Public Use
  Company Number: US-PFIZER INC-2008001794

PATIENT
  Sex: Male
  Weight: 77.727 kg

DRUGS (15)
  1. REVATIO [Suspect]
     Indication: PULMONARY HYPERTENSION
  2. VIAGRA [Suspect]
     Indication: PULMONARY HYPERTENSION
     Dosage: DAILY DOSE:112.5MG
     Dates: start: 20050701, end: 20070401
  3. XANAX [Concomitant]
  4. COMBIVIR [Concomitant]
  5. DIGOXIN [Concomitant]
  6. DILTIAZEM [Concomitant]
  7. FUROSEMIDE [Concomitant]
  8. POTASSIUM CHLORIDE [Concomitant]
  9. SPIRONOLACTONE [Concomitant]
  10. SUSTIVA [Concomitant]
  11. ALL OTHER THERAPEUTIC PRODUCTS [Concomitant]
  12. VIREAD [Concomitant]
  13. WARFARIN SODIUM [Concomitant]
  14. TRACLEER [Concomitant]
  15. ILOPROST [Concomitant]

REACTIONS (4)
  - BALANCE DISORDER [None]
  - DEAFNESS [None]
  - FURUNCLE [None]
  - SPEECH DISORDER [None]
